FAERS Safety Report 5339497-1 (Version None)
Quarter: 2007Q2

REPORT INFORMATION
  Report Type: 
  Country: None (occurrence: None)
  Receive Date: 20070525
  Receipt Date: 20070515
  Transmission Date: 20071010
  Serious: Yes (Other)
  Sender: FDA-Public Use
  Company Number: B0472056A

PATIENT
  Age: 41 Year
  Sex: Male

DRUGS (1)
  1. RETROVIR [Suspect]
     Indication: HIV INFECTION

REACTIONS (1)
  - MYOPATHY TOXIC [None]
